FAERS Safety Report 8127929-5 (Version None)
Quarter: 2012Q1

REPORT INFORMATION
  Report Type: 
  Country: None (occurrence: None)
  Receive Date: 20120210
  Receipt Date: 20120207
  Transmission Date: 20120608
  Serious: Yes (Hospitalization, Other)
  Sender: FDA-Public Use
  Company Number: BR-PFIZER INC-2012034065

PATIENT
  Age: 58 Year
  Sex: Female
  Weight: 70 kg

DRUGS (7)
  1. LYRICA [Suspect]
     Indication: PAIN IN EXTREMITY
     Dosage: 150 MG
     Route: 048
  2. CAPTOPRIL [Concomitant]
     Indication: HYPERTENSION
     Dosage: UNK
     Dates: start: 19920101
  3. NISULID [Concomitant]
     Indication: INFLAMMATION
     Dosage: UNK
     Dates: start: 19920101
  4. BISOPROLOL FUMARATE [Concomitant]
     Indication: ARTHRITIS
     Dosage: UNK
     Dates: start: 19920101
  5. PROPRANOLOL [Concomitant]
     Indication: HYPERTENSION
     Dosage: UNK
     Dates: start: 19920101
  6. CORTISONE [Concomitant]
     Indication: ARTHRITIS
     Dosage: UNK
     Dates: start: 19920101
  7. ARAVA [Concomitant]
     Indication: MUSCULOSKELETAL PAIN
     Dosage: UNK
     Dates: start: 19920101

REACTIONS (3)
  - INFECTION [None]
  - SPINAL DISORDER [None]
  - KNEE ARTHROPLASTY [None]
